FAERS Safety Report 8399241 (Version 6)
Quarter: 2013Q3

REPORT INFORMATION
  Report Type: Spontaneous
  Country: US (occurrence: US)
  Receive Date: 20120210
  Receipt Date: 20130705
  Transmission Date: 20140515
  Serious: Yes (Disabling, Other)
  Sender: FDA-Public Use
  Company Number: US-PFIZER INC-2012033282

PATIENT
  Age: 57 Year
  Sex: Male
  Weight: 65.76 kg

DRUGS (6)
  1. LYRICA [Suspect]
     Indication: INTERVERTEBRAL DISC PROTRUSION
     Dosage: 150 MG, 2X/DAY
  2. LYRICA [Suspect]
     Indication: NERVE INJURY
     Dosage: 150 MG, 1X/DAY
  3. XANAX [Suspect]
     Dosage: UNK
     Dates: end: 201212
  4. VALIUM [Concomitant]
     Dosage: UNK
  5. BACLOFEN [Concomitant]
     Indication: MUSCLE RELAXANT THERAPY
     Dosage: 10 MG DAILY
  6. HYDROCHLOROTHIAZIDE [Concomitant]
     Indication: HYPERTENSION
     Dosage: 20 MG DAILY

REACTIONS (7)
  - Prostate cancer [Recovered/Resolved]
  - Pain [Unknown]
  - Impaired work ability [Unknown]
  - Nerve injury [Unknown]
  - Abdominal pain upper [Unknown]
  - Pain in extremity [Unknown]
  - Weight increased [Unknown]
